FAERS Safety Report 5514426-6 (Version None)
Quarter: 2007Q4

REPORT INFORMATION
  Report Type: 
  Country: None (occurrence: None)
  Receive Date: 20071113
  Receipt Date: 20070517
  Transmission Date: 20080405
  Serious: No
  Sender: FDA-Public Use
  Company Number: A0651758A

PATIENT
  Age: 90 Year
  Sex: Male

DRUGS (6)
  1. COREG [Suspect]
     Indication: HYPERTENSION
     Dosage: 6.25MG TWICE PER DAY
     Route: 048
     Dates: start: 20070101
  2. COZAAR [Concomitant]
  3. HYTRIN [Concomitant]
  4. ASPIRIN [Concomitant]
  5. PROTONIX [Concomitant]
  6. VITAMIN CAP [Concomitant]

REACTIONS (3)
  - FATIGUE [None]
  - HEART RATE DECREASED [None]
  - HYPOTENSION [None]
